FAERS Safety Report 19201670 (Version 4)
Quarter: 2021Q4

REPORT INFORMATION
  Report Type: Report from Study
  Country: BR (occurrence: None)
  Receive Date: 20210430
  Receipt Date: 20211203
  Transmission Date: 20220304
  Serious: Yes (Hospitalization)
  Sender: FDA-Public Use
  Company Number: BR-ROCHE-2751429

PATIENT
  Age: 66 Year
  Sex: Female
  Weight: 69 kg

DRUGS (29)
  1. TIRAGOLUMAB [Suspect]
     Active Substance: TIRAGOLUMAB
     Indication: Triple negative breast cancer
     Dosage: ON 28/DEC/2020, SHE RECEIVED MOST RECENT DOSE PRIOR TO SECOND OCCURENCE OF INFUSION RELATED REACTION
     Route: 042
     Dates: start: 20201229
  2. ATEZOLIZUMAB [Suspect]
     Active Substance: ATEZOLIZUMAB
     Indication: Triple negative breast cancer
     Dosage: ON 12/JAN/2021, SHE RECEIVED MOST RECENT DOSE OF ATEZOLIZUMAB PRIOR TO SECOND OCCURENCE OF ATEZOLIZU
     Route: 041
     Dates: start: 20201229
  3. PACLITAXEL [Suspect]
     Active Substance: PACLITAXEL
     Indication: Triple negative breast cancer
     Dosage: LAST DOSE PRIOR TO AE:120 MG?ON 05/JAN/2021, SHE RECEIVED MOST RECENT DOSE OF NAB-PACLITAXEL 120 MG
     Route: 042
     Dates: start: 20201229
  4. DOXORUBICIN [Suspect]
     Active Substance: DOXORUBICIN
     Indication: Triple negative breast cancer
     Dosage: DATE OF MOST RECENT DOSE (99 MG) PRIOR TO SAE ONSET:29/MAR/2021.
     Route: 042
     Dates: start: 20210329
  5. CYCLOPHOSPHAMIDE [Suspect]
     Active Substance: CYCLOPHOSPHAMIDE
     Indication: Triple negative breast cancer
     Dosage: DATE OF MOST RECENT DOSE (990 MG) PRIOR TO SAE ONSET: 29/MAR/2021.
     Route: 042
     Dates: start: 20210329
  6. METFORMIN HYDROCHLORIDE [Concomitant]
     Active Substance: METFORMIN HYDROCHLORIDE
     Indication: Diabetes mellitus
     Route: 048
     Dates: start: 20201229, end: 20210210
  7. PALONOSETRON [Concomitant]
     Active Substance: PALONOSETRON
     Route: 042
     Dates: start: 20210105, end: 20210105
  8. PALONOSETRON [Concomitant]
     Active Substance: PALONOSETRON
     Route: 042
     Dates: start: 20210112, end: 20210112
  9. PALONOSETRON [Concomitant]
     Active Substance: PALONOSETRON
     Route: 042
     Dates: start: 20201229, end: 20201229
  10. PALONOSETRON [Concomitant]
     Active Substance: PALONOSETRON
     Route: 042
     Dates: start: 20210201, end: 20210201
  11. PALONOSETRON [Concomitant]
     Active Substance: PALONOSETRON
     Route: 042
     Dates: start: 20210208, end: 20210208
  12. PALONOSETRON [Concomitant]
     Active Substance: PALONOSETRON
     Route: 048
     Dates: start: 20210215, end: 20210215
  13. PALONOSETRON [Concomitant]
     Active Substance: PALONOSETRON
     Route: 048
     Dates: start: 20210222, end: 20210222
  14. PALONOSETRON [Concomitant]
     Active Substance: PALONOSETRON
     Route: 042
     Dates: start: 20210301, end: 20210301
  15. PALONOSETRON [Concomitant]
     Active Substance: PALONOSETRON
     Route: 042
     Dates: start: 20210315, end: 20210315
  16. 3M CAVILON ANTIFUNGAL [Concomitant]
     Active Substance: MICONAZOLE NITRATE
     Indication: Skin ulcer
     Dates: start: 20210411
  17. PANTOPRAZOLE [Concomitant]
     Active Substance: PANTOPRAZOLE
     Indication: Gastric ulcer
     Dates: start: 20210412
  18. PEGFILGRASTIM [Concomitant]
     Active Substance: PEGFILGRASTIM
     Dosage: 6 BEATS/MIN
     Route: 058
     Dates: start: 20210330
  19. UREADIN [Concomitant]
     Route: 061
     Dates: start: 20210215
  20. BETNOVATE [Concomitant]
     Active Substance: BETAMETHASONE
     Dosage: 0.1 OTHER
     Route: 061
     Dates: start: 20210215, end: 20210315
  21. CEPHALEXIN [Concomitant]
     Active Substance: CEPHALEXIN
     Route: 048
     Dates: start: 20210308, end: 20210318
  22. DECADRON [Concomitant]
     Active Substance: DEXAMETHASONE
     Route: 042
     Dates: start: 20210329, end: 20210329
  23. EMEND [Concomitant]
     Active Substance: APREPITANT
     Route: 042
     Dates: start: 20210329, end: 20210329
  24. ENOXAPARIN SODIUM [Concomitant]
     Active Substance: ENOXAPARIN SODIUM
     Route: 058
     Dates: start: 20210407
  25. PANTOPRAZOLE [Concomitant]
     Active Substance: PANTOPRAZOLE
     Indication: Gastric ulcer
     Dates: start: 20210412, end: 20210423
  26. LANTUS [Concomitant]
     Active Substance: INSULIN GLARGINE
     Indication: Diabetes mellitus
     Dates: start: 20210412, end: 20210423
  27. DIMENHYDRINATE\PYRIDOXINE HYDROCHLORIDE [Concomitant]
     Active Substance: DIMENHYDRINATE\PYRIDOXINE HYDROCHLORIDE
     Dates: start: 20210414, end: 20210423
  28. ELECTROLYTES NOS\POLYETHYLENE GLYCOL 3350 [Concomitant]
     Active Substance: ELECTROLYTES NOS\POLYETHYLENE GLYCOL 3350
     Indication: Constipation
     Dates: start: 20210422, end: 20210423
  29. LORATADINE [Concomitant]
     Active Substance: LORATADINE
     Route: 048
     Dates: start: 20210126, end: 20210206

REACTIONS (3)
  - Skin infection [Recovered/Resolved]
  - Infusion related reaction [Recovered/Resolved]
  - Infusion related reaction [Recovered/Resolved]

NARRATIVE: CASE EVENT DATE: 20201229
